FAERS Safety Report 6996416-X (Version None)
Quarter: 2010Q3

REPORT INFORMATION
  Report Type: 
  Country: None (occurrence: None)
  Receive Date: 20100918
  Receipt Date: 20090305
  Transmission Date: 20110219
  Serious: Yes (Other)
  Sender: FDA-Public Use
  Company Number: US-WYE-H08477109

PATIENT
  Sex: Female
  Weight: 90.8 kg

DRUGS (5)
  1. EFFEXOR XR [Suspect]
     Indication: DEPRESSION
     Route: 048
     Dates: start: 20030101
  2. EFFEXOR XR [Suspect]
     Route: 048
  3. EFFEXOR XR [Suspect]
     Route: 048
     Dates: end: 20090227
  4. EFFEXOR XR [Suspect]
     Route: 048
     Dates: start: 20090305
  5. AVAPRO [Concomitant]
     Indication: HYPERTENSION
     Dosage: ^QD^

REACTIONS (7)
  - BLOOD PRESSURE INCREASED [None]
  - DRUG WITHDRAWAL SYNDROME [None]
  - FATIGUE [None]
  - INFLUENZA LIKE ILLNESS [None]
  - NAUSEA [None]
  - PARAESTHESIA [None]
  - TINNITUS [None]
